FAERS Safety Report 17542478 (Version 1)
Quarter: 2020Q1

REPORT INFORMATION
  Report Type: Spontaneous
  Country: JP (occurrence: JP)
  Receive Date: 20200314
  Receipt Date: 20200314
  Transmission Date: 20200409
  Serious: Yes (Other)
  Sender: FDA-Public Use
  Company Number: JP-TEVA-2020-JP-1204096

PATIENT
  Age: 47 Year
  Sex: Male

DRUGS (8)
  1. METHYLPREDNISOLONE. [Suspect]
     Active Substance: METHYLPREDNISOLONE
     Dosage: 1 GRAM DAILY; PULSE THERAPY RE-ADMINISTERED
     Route: 042
  2. CYCLOSPORIN A [Suspect]
     Active Substance: CYCLOSPORINE
     Indication: DRUG REACTION WITH EOSINOPHILIA AND SYSTEMIC SYMPTOMS
     Dosage: 50 MILLIGRAM DAILY;
     Route: 065
  3. IMMUNE GLOBULIN NOS [Concomitant]
     Active Substance: IMMUNE GLOBULIN NOS
     Route: 042
  4. PREDNISOLONE. [Suspect]
     Active Substance: PREDNISOLONE
     Indication: DRUG REACTION WITH EOSINOPHILIA AND SYSTEMIC SYMPTOMS
     Dosage: 20 MILLIGRAM DAILY;
     Route: 065
  5. PREDNISOLONE. [Suspect]
     Active Substance: PREDNISOLONE
     Dosage: 7.5 MILLIGRAM DAILY;
     Route: 065
  6. METHYLPREDNISOLONE. [Suspect]
     Active Substance: METHYLPREDNISOLONE
     Indication: DRUG REACTION WITH EOSINOPHILIA AND SYSTEMIC SYMPTOMS
     Dosage: 1 GRAM DAILY; PULSE THERAPY
     Route: 042
  7. VALSARTAN. [Suspect]
     Active Substance: VALSARTAN
     Route: 065
  8. PREDNISOLONE. [Suspect]
     Active Substance: PREDNISOLONE
     Dosage: 1MG/KG/DAY
     Route: 048

REACTIONS (6)
  - Herpes zoster [Unknown]
  - Vitiligo [Unknown]
  - Cytomegalovirus infection [Unknown]
  - Tubulointerstitial nephritis [Unknown]
  - Photosensitivity reaction [Unknown]
  - Steroid withdrawal syndrome [Unknown]
